FAERS Safety Report 4710728-1 (Version None)
Quarter: 2005Q3

REPORT INFORMATION
  Report Type: 
  Country: None (occurrence: None)
  Receive Date: 20050711
  Receipt Date: 20050630
  Transmission Date: 20060218
  Serious: Yes (Other)
  Sender: FDA-Public Use
  Company Number: US-GLAXOSMITHKLINE-A0564694A

PATIENT
  Age: 81 Year
  Sex: Female
  Weight: 77 kg

DRUGS (4)
  1. GERITOL COMPLETE TABLETS [Suspect]
     Indication: VITAMIN SUPPLEMENTATION
     Route: 048
     Dates: start: 19700101, end: 20050630
  2. CARDIAZEM [Concomitant]
     Dosage: 300MG PER DAY
     Route: 048
     Dates: start: 19950101
  3. LASIX [Concomitant]
     Dosage: 20MG PER DAY
     Route: 048
     Dates: start: 19950101
  4. CARDURA [Concomitant]
     Dosage: 8MG PER DAY
     Route: 048

REACTIONS (2)
  - BLOOD IRON INCREASED [None]
  - URETHRAL HAEMORRHAGE [None]
